FAERS Safety Report 8339289-5 (Version None)
Quarter: 2012Q2

REPORT INFORMATION
  Report Type: 
  Country: None (occurrence: None)
  Receive Date: 20120507
  Receipt Date: 20120503
  Transmission Date: 20120825
  Serious: Yes (Other)
  Sender: FDA-Public Use
  Company Number: IL-BAYER-2012-033272

PATIENT
  Age: 60 Year
  Sex: Male

DRUGS (2)
  1. GLUCOMIN [Concomitant]
     Indication: TYPE 2 DIABETES MELLITUS
  2. BETASERON [Suspect]
     Indication: MULTIPLE SCLEROSIS
     Dosage: 0.25 ML, QOD
     Dates: start: 20120404

REACTIONS (4)
  - MUSCLE SPASMS [None]
  - SENSATION OF HEAVINESS [None]
  - MOBILITY DECREASED [None]
  - INCONTINENCE [None]
